FAERS Safety Report 25751835 (Version 1)
Quarter: 2025Q3

REPORT INFORMATION
  Report Type: Spontaneous
  Country: US (occurrence: US)
  Receive Date: 20250902
  Receipt Date: 20250902
  Transmission Date: 20251021
  Serious: No
  Sender: BAYER HEALTHCARE LLC
  Company Number: US-BAYER-2025A115292

PATIENT
  Sex: Male

DRUGS (4)
  1. MIRALAX [Suspect]
     Active Substance: POLYETHYLENE GLYCOL 3350
     Indication: Constipation
  2. DUPIXENT [Concomitant]
     Active Substance: DUPILUMAB
  3. METAMUCIL [Concomitant]
     Active Substance: PLANTAGO SEED
  4. Fungal [Concomitant]

REACTIONS (1)
  - Diarrhoea [Recovered/Resolved]
